FAERS Safety Report 25473717 (Version 1)
Quarter: 2025Q2

REPORT INFORMATION
  Report Type: Spontaneous
  Country: US (occurrence: US)
  Receive Date: 20250624
  Receipt Date: 20250624
  Transmission Date: 20250717
  Serious: Yes (Other)
  Sender: BLUEPRINT MEDICINES
  Company Number: US-Blueprint Medicines Corporation-2025-AER-01319

PATIENT

DRUGS (2)
  1. AYVAKIT [Suspect]
     Active Substance: AVAPRITINIB
     Indication: Mastocytosis
     Route: 065
  2. CROMOLYN [Concomitant]
     Active Substance: CROMOLYN
     Indication: Product used for unknown indication
     Route: 065

REACTIONS (23)
  - Condition aggravated [Unknown]
  - Mastocytosis [Unknown]
  - Lung disorder [Unknown]
  - Fatigue [Unknown]
  - Nasal discomfort [Unknown]
  - Tinnitus [Unknown]
  - Headache [Unknown]
  - Anger [Unknown]
  - Crying [Unknown]
  - Chest pain [Unknown]
  - Heart rate increased [Unknown]
  - Dyspnoea [Unknown]
  - Pain [Unknown]
  - Peripheral coldness [Unknown]
  - Feeling hot [Unknown]
  - Paraesthesia [Unknown]
  - Flushing [Unknown]
  - Dry eye [Unknown]
  - Oropharyngeal pain [Unknown]
  - Body dysmorphic disorder [Unknown]
  - Sensation of foreign body [Unknown]
  - Musculoskeletal stiffness [Unknown]
  - Drug ineffective [Unknown]
